FAERS Safety Report 8875911 (Version 1)
Quarter: 2012Q4

REPORT INFORMATION
  Report Type: 
  Country: US (occurrence: US)
  Receive Date: 20121023
  Receipt Date: 20121023
  Transmission Date: 20130627
  Serious: Yes (Death, Hospitalization)
  Sender: FDA-Public Use
  Company Number: US-GLAXOSMITHKLINE-A0997689A

PATIENT
  Age: 78 Year
  Sex: Male

DRUGS (17)
  1. ADVAIR [Suspect]
     Indication: ASTHMA
     Dosage: 1PUFF Twice per day
     Route: 055
     Dates: start: 2009, end: 20121010
  2. HEART MEDICATION [Concomitant]
  3. QVAR [Concomitant]
  4. TESSALON PERLES [Concomitant]
  5. GLUCOSAMINE [Concomitant]
  6. DEMECLOCYCLINE [Concomitant]
  7. LASIX [Concomitant]
  8. XOPENEX [Concomitant]
  9. LISINOPRIL [Concomitant]
  10. LORAZEPAM [Concomitant]
  11. UNSPECIFIED MEDICATION [Concomitant]
  12. METOPROLOL [Concomitant]
  13. OMEPRAZOLE [Concomitant]
  14. NASACORT [Concomitant]
  15. COUMADIN [Concomitant]
  16. ALBUTEROL [Concomitant]
     Route: 055
  17. IPRATROPIUM [Concomitant]
     Route: 055

REACTIONS (8)
  - Cardiac failure [Fatal]
  - Spinal fracture [Unknown]
  - Aphagia [Unknown]
  - Cardiac arrest [Unknown]
  - Dizziness [Unknown]
  - Fall [Unknown]
  - Decreased appetite [Unknown]
  - Cardiac disorder [Unknown]
